FAERS Safety Report 14006752 (Version 1)
Quarter: 2017Q3

REPORT INFORMATION
  Report Type: Spontaneous
  Country: US (occurrence: US)
  Receive Date: 20170925
  Receipt Date: 20170925
  Transmission Date: 20171128
  Serious: No
  Sender: FDA-Public Use
  Company Number: US-ALVOGEN-2017-ALVOGEN-092775

PATIENT
  Sex: Male

DRUGS (1)
  1. RIVASTIGMINE. [Suspect]
     Active Substance: RIVASTIGMINE
     Indication: AMNESIA
     Route: 062

REACTIONS (2)
  - Drug ineffective [Unknown]
  - Drug administration error [Not Recovered/Not Resolved]
